FAERS Safety Report 4918463-1 (Version None)
Quarter: 2006Q1

REPORT INFORMATION
  Report Type: 
  Country: None (occurrence: None)
  Receive Date: 20060222
  Receipt Date: 20060208
  Transmission Date: 20060701
  Serious: Yes (Hospitalization)
  Sender: FDA-Public Use
  Company Number: PHRM2006FR00738

PATIENT
  Age: 78 Year
  Sex: Female
  Weight: 80 kg

DRUGS (14)
  1. NITRODERM [Suspect]
     Indication: ANGINA PECTORIS
     Dosage: 1 DF, DAILY
     Route: 062
  2. OMEPRAZOLE [Suspect]
     Indication: GASTRIC ULCER
     Dosage: 40 MG DAILY
     Route: 048
  3. VASTAREL ^BIOPHARMA^ [Concomitant]
     Route: 048
  4. PARACETAMOL [Concomitant]
  5. OXYBUTYNIN [Concomitant]
     Route: 048
  6. MOLSIDOMINE [Concomitant]
     Route: 048
  7. FENOFIBRATE [Concomitant]
     Route: 048
  8. BI-PROFENID [Suspect]
     Indication: ARTHRALGIA
     Dosage: 300 MG DAILY
     Route: 048
     Dates: start: 20051202, end: 20051205
  9. BACTRIM DS [Suspect]
     Indication: URINARY TRACT INFECTION
     Dosage: 2 DF DAILY
     Route: 048
     Dates: start: 20051127, end: 20051202
  10. TRIATEC [Suspect]
     Indication: ANGINA PECTORIS
     Dosage: 5 MG DAILY
     Route: 048
  11. CORTANCYL [Suspect]
     Indication: ARTHRALGIA
     Dosage: 40 MG  DAILY
     Route: 048
     Dates: start: 20051206, end: 20051209
  12. IMOVANE [Concomitant]
     Route: 048
  13. SERESTA [Concomitant]
     Route: 048
  14. INSULATARD NPH HUMAN [Concomitant]

REACTIONS (12)
  - ALANINE AMINOTRANSFERASE INCREASED [None]
  - ANGINA PECTORIS [None]
  - ASPARTATE AMINOTRANSFERASE INCREASED [None]
  - BLOOD ALKALINE PHOSPHATASE [None]
  - BLOOD LACTATE DEHYDROGENASE INCREASED [None]
  - BLOOD PRESSURE INADEQUATELY CONTROLLED [None]
  - DIABETES MELLITUS INADEQUATE CONTROL [None]
  - GAMMA-GLUTAMYLTRANSFERASE INCREASED [None]
  - HEPATIC FUNCTION ABNORMAL [None]
  - HYPERKALAEMIA [None]
  - RENAL FAILURE ACUTE [None]
  - RENAL FUNCTION TEST ABNORMAL [None]
